FAERS Safety Report 13958568 (Version 1)
Quarter: 2017Q3

REPORT INFORMATION
  Report Type: Spontaneous
  Country: US (occurrence: US)
  Receive Date: 20170911
  Receipt Date: 20170911
  Transmission Date: 20171128
  Serious: Yes (Death, Other)
  Sender: FDA-Public Use
  Company Number: US-ROCHE-780914

PATIENT
  Age: 70 Year
  Sex: Male

DRUGS (3)
  1. PENTOSTATIN. [Suspect]
     Active Substance: PENTOSTATIN
     Indication: LYMPHOCYTIC LEUKAEMIA
     Route: 065
  2. RITUXIMAB. [Suspect]
     Active Substance: RITUXIMAB
     Indication: LYMPHOCYTIC LEUKAEMIA
     Route: 065
  3. CYCLOPHOSPHAMIDE. [Suspect]
     Active Substance: CYCLOPHOSPHAMIDE
     Indication: LYMPHOCYTIC LEUKAEMIA
     Route: 065

REACTIONS (3)
  - Anaemia [Recovered/Resolved]
  - Herpes zoster [Recovered/Resolved]
  - Progressive multifocal leukoencephalopathy [Fatal]
